FAERS Safety Report 7647339-4 (Version None)
Quarter: 2011Q3

REPORT INFORMATION
  Report Type: 
  Country: None (occurrence: None)
  Receive Date: 20110801
  Receipt Date: 20110722
  Transmission Date: 20111222
  Serious: Yes (Other)
  Sender: FDA-Public Use
  Company Number: FR-ROCHE-792196

PATIENT
  Sex: Male

DRUGS (3)
  1. ISOTRETINOIN [Suspect]
     Route: 048
     Dates: start: 19961001, end: 19980401
  2. ISOTRETINOIN [Suspect]
     Indication: ACNE
     Route: 048
     Dates: start: 19940101, end: 19950601
  3. ISOTRETINOIN [Suspect]
     Route: 048
     Dates: start: 20050101, end: 20050101

REACTIONS (4)
  - DEPRESSION [None]
  - CONJUNCTIVITIS [None]
  - RASH [None]
  - SUICIDE ATTEMPT [None]
